FAERS Safety Report 9409219 (Version 1)
Quarter: 2013Q3

REPORT INFORMATION
  Report Type: Spontaneous
  Country: US (occurrence: US)
  Receive Date: 20130719
  Receipt Date: 20130719
  Transmission Date: 20140515
  Serious: Yes (Hospitalization, Other)
  Sender: FDA-Public Use
  Company Number: US-TEVA-419703USA

PATIENT
  Age: 72 Year
  Sex: Female

DRUGS (9)
  1. FLUOROURACIL [Suspect]
     Indication: PANCREATIC CARCINOMA METASTATIC
     Dosage: 80% DOSE REDUCTION; THEN INCREASED TO 90% DOSE INTENSITY
     Route: 065
  2. FLUOROURACIL [Suspect]
     Indication: PANCREATIC CARCINOMA METASTATIC
     Dosage: 90% DOSE INTENSITY
     Route: 065
  3. FOLINIC ACID [Suspect]
     Indication: PANCREATIC CARCINOMA METASTATIC
     Dosage: 80% DOSE REDUCTION; THEN INCREASED TO 90% DOSE INTENSITY
     Route: 065
  4. FOLINIC ACID [Suspect]
     Indication: PANCREATIC CARCINOMA METASTATIC
     Dosage: 90% DOSE INTENSITY
     Route: 065
  5. IRINOTECAN [Suspect]
     Indication: PANCREATIC CARCINOMA METASTATIC
     Dosage: 80% DOSE REDUCTION; THEN INCREASED TO 90% DOSE INTENSITY
     Route: 065
  6. IRINOTECAN [Suspect]
     Indication: PANCREATIC CARCINOMA METASTATIC
     Dosage: 90% DOSE INTENSITY
     Route: 065
  7. OXALIPLATIN [Suspect]
     Indication: PANCREATIC CARCINOMA METASTATIC
     Dosage: 80% DOSE REDUCTION; THEN INCREASED TO 90% DOSE INTENSITY
     Route: 065
  8. OXALIPLATIN [Suspect]
     Indication: PANCREATIC CARCINOMA METASTATIC
     Dosage: 90% DOSE INTENSITY
     Route: 065
  9. ACICLOVIR [Concomitant]
     Indication: HERPES ZOSTER
     Route: 065

REACTIONS (8)
  - Bone marrow failure [Recovering/Resolving]
  - Peripheral sensory neuropathy [Unknown]
  - Diarrhoea [Recovering/Resolving]
  - Nausea [Unknown]
  - Vomiting [Unknown]
  - Anaemia [Unknown]
  - Thrombocytopenia [Unknown]
  - Herpes zoster [Unknown]
